FAERS Safety Report 11090285 (Version 3)
Quarter: 2015Q2

REPORT INFORMATION
  Report Type: Report from Study
  Country: CA (occurrence: CA)
  Receive Date: 20150505
  Receipt Date: 20150520
  Transmission Date: 20150821
  Serious: Yes (Hospitalization, Other)
  Sender: FDA-Public Use
  Company Number: CA-BAYER-2015-157897

PATIENT
  Age: 79 Year
  Sex: Male

DRUGS (8)
  1. STIVARGA [Suspect]
     Active Substance: REGORAFENIB
     Indication: COLORECTAL CANCER METASTATIC
     Dosage: 160 MG, QD
     Route: 048
     Dates: start: 20150413, end: 20150427
  2. STIVARGA [Suspect]
     Active Substance: REGORAFENIB
     Indication: COLORECTAL CANCER METASTATIC
     Dosage: 160 MG, QD
     Route: 048
     Dates: start: 20150413
  3. VITAMIN B12 [Concomitant]
     Active Substance: CYANOCOBALAMIN
  4. HEPARIN [Concomitant]
     Active Substance: HEPARIN SODIUM
  5. SUPEUDOL [Concomitant]
     Active Substance: OXYCODONE HYDROCHLORIDE
  6. DILAUDID [Concomitant]
     Active Substance: HYDROMORPHONE HYDROCHLORIDE
  7. FRAGMIN [Concomitant]
     Active Substance: DALTEPARIN SODIUM
     Indication: PULMONARY EMBOLISM
     Dosage: TOTAL DAILY DOSE 15000 DAILY
  8. PREDNISONE. [Concomitant]
     Active Substance: PREDNISONE

REACTIONS (16)
  - Musculoskeletal disorder [Not Recovered/Not Resolved]
  - Gait disturbance [Not Recovered/Not Resolved]
  - Pain in extremity [Not Recovered/Not Resolved]
  - Haematoma [None]
  - Vomiting [None]
  - Pain in extremity [Not Recovered/Not Resolved]
  - Abdominal pain [Unknown]
  - Pulmonary embolism [None]
  - Muscle rupture [Not Recovered/Not Resolved]
  - Muscle spasms [Unknown]
  - Gastrointestinal pain [Recovered/Resolved]
  - Fall [None]
  - Pain in extremity [Recovering/Resolving]
  - Traumatic haemorrhage [None]
  - Hypophagia [None]
  - Thrombosis [Recovered/Resolved]

NARRATIVE: CASE EVENT DATE: 2015
